FAERS Safety Report 15762984 (Version 4)
Quarter: 2020Q2

REPORT INFORMATION
  Report Type: Report from Study
  Country: US (occurrence: US)
  Receive Date: 20181226
  Receipt Date: 20200612
  Transmission Date: 20200713
  Serious: Yes (Hospitalization)
  Sender: FDA-Public Use
  Company Number: US-ACTELION-A-US2018-184183

PATIENT
  Sex: Male
  Weight: 122.9 kg

DRUGS (4)
  1. XARELTO [Concomitant]
     Active Substance: RIVAROXABAN
  2. ADCIRCA [Concomitant]
     Active Substance: TADALAFIL
  3. VENTAVIS [Suspect]
     Active Substance: ILOPROST
     Indication: PULMONARY ARTERIAL HYPERTENSION
     Dosage: 5 MCG, 6-9 TIMES/ DAY
     Route: 055
  4. VENTAVIS [Suspect]
     Active Substance: ILOPROST
     Dosage: 5 MCG, 4-9 TIMES/DAY
     Route: 055

REACTIONS (3)
  - Weight increased [Unknown]
  - Chronic obstructive pulmonary disease [Unknown]
  - Atrial fibrillation [Unknown]
